FAERS Safety Report 5654599-8 (Version None)
Quarter: 2008Q1

REPORT INFORMATION
  Report Type: 
  Country: None (occurrence: None)
  Receive Date: 20080307
  Receipt Date: 20080226
  Transmission Date: 20080703
  Serious: Yes (Other)
  Sender: FDA-Public Use
  Company Number: ES-WYE-G01136008

PATIENT
  Age: 78 Year
  Sex: Female

DRUGS (10)
  1. VANDRAL RETARD [Suspect]
     Route: 048
     Dates: start: 20010101, end: 20070202
  2. CARDYL [Concomitant]
     Route: 048
     Dates: start: 20050101
  3. EMCONCOR [Concomitant]
     Route: 048
     Dates: start: 20030101
  4. TRANKIMAZIN [Concomitant]
     Route: 048
     Dates: start: 20010101
  5. GLUTAFERRO [Concomitant]
     Route: 048
     Dates: start: 20060101
  6. NOVONORM [Concomitant]
     Dosage: THREE TIMES PER DAY
     Route: 048
     Dates: start: 20040101
  7. KARVEA [Concomitant]
     Route: 048
     Dates: start: 20040101
  8. PLANTABEN [Concomitant]
     Route: 048
     Dates: start: 20060101
  9. OMEPRAZOLE [Concomitant]
     Route: 048
     Dates: start: 20030101
  10. SEGURIL [Concomitant]
     Route: 048
     Dates: start: 19970101

REACTIONS (1)
  - PARKINSONISM [None]
